FAERS Safety Report 21208422 (Version 2)
Quarter: 2022Q4

REPORT INFORMATION
  Report Type: Spontaneous
  Country: ES (occurrence: ES)
  Receive Date: 20220812
  Receipt Date: 20221110
  Transmission Date: 20230113
  Serious: Yes (Other)
  Sender: FDA-Public Use
  Company Number: ES-JNJFOC-20220809162

PATIENT

DRUGS (1)
  1. STELARA [Suspect]
     Active Substance: USTEKINUMAB
     Indication: Crohn^s disease
     Route: 040
     Dates: start: 20220701

REACTIONS (7)
  - Bicytopenia [Unknown]
  - Thrombocytopenia [Unknown]
  - Myasthenia gravis [Unknown]
  - Thymoma [Unknown]
  - Immunodeficiency [Unknown]
  - Intestinal ulcer [Unknown]
  - Infection [Unknown]
